FAERS Safety Report 9379583 (Version 2)
Quarter: 2013Q3

REPORT INFORMATION
  Report Type: Report from Study
  Country: IL (occurrence: IL)
  Receive Date: 20130702
  Receipt Date: 20130709
  Transmission Date: 20140515
  Serious: Yes (Hospitalization)
  Sender: FDA-Public Use
  Company Number: IL-TEVA-416193ISR

PATIENT
  Age: 11 Year
  Sex: Male

DRUGS (8)
  1. VINCRISTINE [Suspect]
     Indication: NEOPLASM MALIGNANT
     Dosage: LAST DOSE PRIOR TO SAE ON 10/JUN/2013 (2 MG)
     Route: 042
     Dates: start: 20130526
  2. ACTINOMYCIN [Suspect]
     Indication: NEOPLASM MALIGNANT
     Dosage: LAST DOSE PRIOR TO SAE ON 26/MAY/2013 (2000 MICROGR)
     Route: 042
     Dates: start: 20130526
  3. ADRIAMYCIN [Suspect]
     Indication: NEOPLASM MALIGNANT
     Dosage: LAST DOSE PRIOR TO SAE ON 27/MAY/2013 (41.7 MG)
     Route: 042
     Dates: start: 20130526
  4. IFOSFAMIDE [Suspect]
     Indication: NEOPLASM MALIGNANT
     Dosage: LAST DOSE PRIOR TO SAE ON 27/MAY/2013 (4.17 UNIT)
     Route: 042
     Dates: start: 20130526
  5. ACAMOL [Concomitant]
     Dosage: 630 MILLIGRAM DAILY;
     Dates: start: 20130611
  6. RESPRIM [Concomitant]
     Dosage: TRIMETHOPRIM 160 MG, SULFAMETHOXAZOLE 800 MG
     Dates: start: 20130526
  7. AMIKACIN [Concomitant]
     Dosage: 6730 MILLIGRAM DAILY;
     Dates: start: 20130611
  8. TAZOCIN [Concomitant]

REACTIONS (1)
  - Febrile neutropenia [Recovered/Resolved]
